FAERS Safety Report 24693073 (Version 1)
Quarter: 2024Q4

REPORT INFORMATION
  Report Type: Spontaneous
  Country: GB (occurrence: GB)
  Receive Date: 20241203
  Receipt Date: 20241203
  Transmission Date: 20250114
  Serious: Yes (Other)
  Sender: ELI LILLY AND COMPANY
  Company Number: None

PATIENT
  Age: 55 Year
  Sex: Female
  Weight: 247 kg

DRUGS (3)
  1. MOUNJARO [Suspect]
     Active Substance: TIRZEPATIDE
     Indication: Weight control
     Dosage: UNK UNK, UNKNOWN
     Route: 065
     Dates: start: 202408
  2. MOUNJARO [Suspect]
     Active Substance: TIRZEPATIDE
     Indication: Weight control
     Dosage: 10 MG, UNKNOWN
     Route: 065
  3. MOUNJARO [Suspect]
     Active Substance: TIRZEPATIDE
     Dosage: UNK UNK, UNKNOWN
     Route: 065

REACTIONS (3)
  - Suicidal ideation [Recovered/Resolved]
  - Depressed mood [Unknown]
  - Emotional poverty [Unknown]

NARRATIVE: CASE EVENT DATE: 20240801
